FAERS Safety Report 24040716 (Version 1)
Quarter: 2024Q3

REPORT INFORMATION
  Report Type: Spontaneous
  Country: US (occurrence: US)
  Receive Date: 20240702
  Receipt Date: 20240702
  Transmission Date: 20241017
  Serious: Yes (Other)
  Sender: ENDO
  Company Number: US-ENDO USA, INC.-2024-002683

PATIENT
  Age: 75 Year
  Sex: Female

DRUGS (1)
  1. DEXLANSOPRAZOLE [Suspect]
     Active Substance: DEXLANSOPRAZOLE
     Indication: Gastrooesophageal reflux disease
     Dosage: UNK UNKNOWN, UNKNOWN
     Route: 065

REACTIONS (4)
  - Pericardial effusion [Recovered/Resolved]
  - Pleural effusion [Recovered/Resolved]
  - Systemic lupus erythematosus [Recovered/Resolved]
  - Subacute cutaneous lupus erythematosus [Recovered/Resolved]
